FAERS Safety Report 12715129 (Version 4)
Quarter: 2016Q4

REPORT INFORMATION
  Report Type: Spontaneous
  Country: US (occurrence: US)
  Receive Date: 20160905
  Receipt Date: 20161117
  Transmission Date: 20170207
  Serious: Yes (Other)
  Sender: FDA-Public Use
  Company Number: US-JNJFOC-20160827892

PATIENT
  Age: 46 Year
  Sex: Male
  Weight: 83.92 kg

DRUGS (11)
  1. LEVAQUIN [Suspect]
     Active Substance: LEVOFLOXACIN
     Indication: LOWER URINARY TRACT SYMPTOMS
     Dosage: VARYING DOSES OF 500 MG AND 750 MG
     Route: 048
     Dates: start: 20061020
  2. VIGAMOX [Suspect]
     Active Substance: MOXIFLOXACIN HYDROCHLORIDE
     Indication: FOREIGN BODY IN EYE
     Route: 065
     Dates: start: 20060728, end: 20060729
  3. LEVAQUIN [Suspect]
     Active Substance: LEVOFLOXACIN
     Indication: LOWER URINARY TRACT SYMPTOMS
     Dosage: VARYING DOSES OF 500 MG AND 750 MG
     Route: 048
     Dates: start: 20070724, end: 2007
  4. LEVAQUIN [Suspect]
     Active Substance: LEVOFLOXACIN
     Indication: PERINEAL PAIN
     Dosage: VARYING DOSES OF 500 MG AND 750 MG
     Route: 048
     Dates: start: 20071114
  5. LEVAQUIN [Suspect]
     Active Substance: LEVOFLOXACIN
     Indication: PERINEAL PAIN
     Dosage: VARYING DOSES OF 500 MG AND 750 MG
     Route: 048
     Dates: start: 20061020
  6. LEVAQUIN [Suspect]
     Active Substance: LEVOFLOXACIN
     Indication: PROSTATITIS
     Dosage: VARYING DOSES OF 500 MG AND 750 MG
     Route: 048
     Dates: start: 20061020
  7. LEVAQUIN [Suspect]
     Active Substance: LEVOFLOXACIN
     Indication: PERINEAL PAIN
     Dosage: VARYING DOSES OF 500 MG AND 750 MG
     Route: 048
     Dates: start: 20070724, end: 2007
  8. LEVAQUIN [Suspect]
     Active Substance: LEVOFLOXACIN
     Indication: PROSTATITIS
     Dosage: VARYING DOSES OF 500 MG AND 750 MG
     Route: 048
     Dates: start: 20071114
  9. LEVAQUIN [Suspect]
     Active Substance: LEVOFLOXACIN
     Indication: PROSTATITIS
     Dosage: VARYING DOSES OF 500 MG AND 750 MG
     Route: 048
     Dates: start: 20070724, end: 2007
  10. LEVAQUIN [Suspect]
     Active Substance: LEVOFLOXACIN
     Indication: LOWER URINARY TRACT SYMPTOMS
     Dosage: VARYING DOSES OF 500 MG AND 750 MG
     Route: 048
     Dates: start: 20071114
  11. CIPROFLOXACIN. [Suspect]
     Active Substance: CIPROFLOXACIN
     Indication: PROSTATITIS
     Route: 065
     Dates: start: 20060724, end: 20060913

REACTIONS (2)
  - Neuropathy peripheral [Not Recovered/Not Resolved]
  - Tendonitis [Unknown]

NARRATIVE: CASE EVENT DATE: 200711
